FAERS Safety Report 20321101 (Version 1)
Quarter: 2022Q1

REPORT INFORMATION
  Report Type: Spontaneous
  Country: US (occurrence: US)
  Receive Date: 20220111
  Receipt Date: 20220111
  Transmission Date: 20220423
  Serious: No
  Sender: FDA-Public Use
  Company Number: US-BAYER-2022A003915

PATIENT
  Age: 61 Year
  Sex: Female

DRUGS (2)
  1. ALEVEX [Suspect]
     Active Substance: CAMPHOR (SYNTHETIC)\MENTHOL
     Indication: Inflammation
     Dosage: UNK UNK, ONCE
     Route: 061
     Dates: start: 20220108, end: 20220108
  2. ALEVE [Concomitant]
     Active Substance: NAPROXEN SODIUM

REACTIONS (4)
  - Malaise [None]
  - Application site pain [Recovered/Resolved]
  - Nausea [None]
  - Drug ineffective for unapproved indication [None]

NARRATIVE: CASE EVENT DATE: 20220108
